FAERS Safety Report 23422227 (Version 1)
Quarter: 2024Q1

REPORT INFORMATION
  Report Type: Spontaneous
  Country: US (occurrence: None)
  Receive Date: 20240118
  Receipt Date: 20240118
  Transmission Date: 20240410
  Serious: Yes (Death)
  Sender: FDA-Public Use
  Company Number: None

PATIENT
  Age: 66 Year
  Sex: Female

DRUGS (1)
  1. TOBRAMYCIN [Suspect]
     Active Substance: TOBRAMYCIN
     Indication: Pulmonary fibrosis
     Dosage: FREQUENCY : TWICE A DAY;?OTHER ROUTE : NEBULIZER;?
     Route: 050
     Dates: start: 202312

REACTIONS (1)
  - Death [None]

NARRATIVE: CASE EVENT DATE: 20240107
